FAERS Safety Report 4390114-7 (Version None)
Quarter: 2004Q3

REPORT INFORMATION
  Report Type: 
  Country: None (occurrence: None)
  Receive Date: 20040706
  Receipt Date: 20040628
  Transmission Date: 20050211
  Serious: Yes (Other)
  Sender: FDA-Public Use
  Company Number: JP-MERCK-0407USA00170

PATIENT
  Sex: Female

DRUGS (4)
  1. NORVASC [Concomitant]
     Route: 048
  2. DEPAS [Concomitant]
     Route: 065
  3. COZAAR [Suspect]
     Indication: HYPERTENSION
     Route: 048
     Dates: end: 20040619
  4. TARIVID [Suspect]
     Indication: CYSTITIS
     Route: 048
     Dates: end: 20040607

REACTIONS (1)
  - BONE MARROW DEPRESSION [None]
